FAERS Safety Report 20132783 (Version 2)
Quarter: 2021Q4

REPORT INFORMATION
  Report Type: Spontaneous
  Country: AU (occurrence: AU)
  Receive Date: 20211130
  Receipt Date: 20211207
  Transmission Date: 20220303
  Serious: Yes (Hospitalization, Other)
  Sender: FDA-Public Use
  Company Number: AU-MYLANLABS-2021M1088037

PATIENT
  Age: 50 Year
  Sex: Male

DRUGS (1)
  1. CLOZARIL [Suspect]
     Active Substance: CLOZAPINE
     Indication: Schizophrenia
     Dosage: 75 MILLIGRAM
     Route: 048
     Dates: start: 20051206

REACTIONS (9)
  - Extranodal marginal zone B-cell lymphoma (MALT type) [Unknown]
  - Hepatic haemorrhage [Unknown]
  - Haemoglobin decreased [Unknown]
  - Hepatic failure [Unknown]
  - Hepatic cirrhosis [Unknown]
  - Leukopenia [Unknown]
  - Hypersplenism [Unknown]
  - White blood cell count decreased [Not Recovered/Not Resolved]
  - Neutrophil count decreased [Recovered/Resolved]

NARRATIVE: CASE EVENT DATE: 20211124
